FAERS Safety Report 7158245-6 (Version None)
Quarter: 2010Q4

REPORT INFORMATION
  Report Type: 
  Country: None (occurrence: None)
  Receive Date: 20101214
  Receipt Date: 20100330
  Transmission Date: 20110411
  Serious: No
  Sender: FDA-Public Use
  Company Number: US-ASTRAZENECA-2010SE14018

PATIENT
  Age: 63 Year
  Sex: Female

DRUGS (3)
  1. CRESTOR [Suspect]
     Indication: BLOOD CHOLESTEROL INCREASED
     Route: 048
     Dates: start: 20091101, end: 20100101
  2. CRESTOR [Suspect]
     Route: 048
     Dates: start: 20100101, end: 20100101
  3. CRESTOR [Suspect]
     Route: 048
     Dates: start: 20100101

REACTIONS (5)
  - BURNING SENSATION [None]
  - JOINT CREPITATION [None]
  - OEDEMA PERIPHERAL [None]
  - PAIN IN EXTREMITY [None]
  - WRONG TECHNIQUE IN DRUG USAGE PROCESS [None]
